FAERS Safety Report 4613294-4 (Version None)
Quarter: 2005Q1

REPORT INFORMATION
  Report Type: 
  Country: None (occurrence: None)
  Receive Date: 20050315
  Receipt Date: 20050308
  Transmission Date: 20050727
  Serious: Yes (Hospitalization, Other)
  Sender: FDA-Public Use
  Company Number: 200510582GDS

PATIENT
  Age: 93 Year
  Sex: Female
  Weight: 70 kg

DRUGS (6)
  1. ACTIMAX (MOXIFLOXACIN) [Suspect]
     Indication: BRONCHITIS
     Dosage: 400 MG, TOTAL DAILY, ORAL
     Route: 048
     Dates: start: 20051016, end: 20041018
  2. ACTIMAX (MOXIFLOXACIN) [Suspect]
     Indication: SINUSITIS
     Dosage: 400 MG, TOTAL DAILY, ORAL
     Route: 048
     Dates: start: 20051016, end: 20041018
  3. LISINOPRIL AND HYDROCHLOROTHIAZIDE [Concomitant]
  4. NEURONTIN [Concomitant]
  5. MUCOLYTIC DRUGS NOS [Concomitant]
  6. DECONGESTIVE NASAL DROPS [Concomitant]

REACTIONS (2)
  - BALANCE DISORDER [None]
  - VERTIGO [None]
